FAERS Safety Report 25838392 (Version 1)
Quarter: 2025Q3

REPORT INFORMATION
  Report Type: Spontaneous
  Country: CN (occurrence: CN)
  Receive Date: 20250923
  Receipt Date: 20250923
  Transmission Date: 20251021
  Serious: Yes (Other)
  Sender: BOEHRINGER INGELHEIM
  Company Number: CN-BoehringerIngelheim-2025-BI-096333

PATIENT
  Age: 75 Year
  Sex: Female

DRUGS (1)
  1. SPESOLIMAB [Suspect]
     Active Substance: SPESOLIMAB
     Indication: Generalised pustular psoriasis
     Dates: start: 202308

REACTIONS (2)
  - Disease recurrence [Recovering/Resolving]
  - Generalised pustular psoriasis [Recovering/Resolving]

NARRATIVE: CASE EVENT DATE: 20240201
